FAERS Safety Report 8816887 (Version 1)
Quarter: 2012Q4

REPORT INFORMATION
  Report Type: Spontaneous
  Country: FR (occurrence: None)
  Receive Date: 20121002
  Receipt Date: 20121002
  Transmission Date: 20130627
  Serious: Yes (Hospitalization)
  Sender: FDA-Public Use
  Company Number: 7162580

PATIENT
  Age: 66 Year
  Sex: Female

DRUGS (2)
  1. LEVOTHYROX [Suspect]
     Indication: THYROIDECTOMY TOTAL
     Dosage: 40 years before
     Route: 048
  2. CALCIUM (CALCIUM)(CALCIUM) [Concomitant]

REACTIONS (3)
  - Fall [None]
  - Spinal fracture [None]
  - Spinal fracture [None]
